FAERS Safety Report 7670086-X (Version None)
Quarter: 2011Q3

REPORT INFORMATION
  Report Type: 
  Country: None (occurrence: None)
  Receive Date: 20110808
  Receipt Date: 20110805
  Transmission Date: 20111222
  Serious: No
  Sender: FDA-Public Use
  Company Number: US-PFIZER INC-2011179964

PATIENT
  Sex: Male

DRUGS (3)
  1. DILANTIN [Suspect]
     Dosage: 100 MG, 3X/DAY
     Route: 048
     Dates: start: 20010101
  2. PHENOBARBITAL [Concomitant]
     Dosage: UNK
  3. DILANTIN [Suspect]
     Indication: GRAND MAL CONVULSION
     Dosage: 100 MG, 4X/DAY
     Route: 048
     Dates: end: 20010101

REACTIONS (1)
  - NEUROPATHY PERIPHERAL [None]
